FAERS Safety Report 5599768-0 (Version None)
Quarter: 2008Q1

REPORT INFORMATION
  Report Type: 
  Country: None (occurrence: None)
  Receive Date: 20080118
  Receipt Date: 20080118
  Transmission Date: 20080703
  Serious: No
  Sender: FDA-Public Use
  Company Number: None

PATIENT
  Age: 77 Year
  Sex: Female
  Weight: 63 kg

DRUGS (2)
  1. HEPARIN [Suspect]
     Indication: CORONARY ARTERY BYPASS
     Dosage: 20,000 UNITS ONE TIME BOLUS
     Dates: start: 20080116, end: 20080116
  2. HEPARIN [Suspect]

REACTIONS (1)
  - HYPOTENSION [None]
